FAERS Safety Report 5477976-7 (Version None)
Quarter: 2007Q4

REPORT INFORMATION
  Report Type: 
  Country: None (occurrence: None)
  Receive Date: 20071005
  Receipt Date: 20070925
  Transmission Date: 20080405
  Serious: Yes (Life-Threatening, Hospitalization)
  Sender: FDA-Public Use
  Company Number: FR-JNJFOC-20070803949

PATIENT
  Sex: Female
  Weight: 80 kg

DRUGS (10)
  1. REMINYL LP [Suspect]
     Route: 048
  2. REMINYL LP [Suspect]
     Indication: DEMENTIA ALZHEIMER'S TYPE
     Route: 048
  3. COAPROVEL [Concomitant]
     Indication: HYPERTENSION
  4. ISKEDYL [Concomitant]
     Indication: VISUAL ACUITY REDUCED
  5. TANGANIL [Concomitant]
     Indication: VERTIGO
  6. KARDEGIC [Concomitant]
     Indication: CORONARY ARTERY DISEASE
  7. INEXIUM [Concomitant]
     Indication: PLATELET AGGREGATION
  8. ELISOR [Concomitant]
     Indication: HYPERCHOLESTEROLAEMIA
  9. TENORMIN [Concomitant]
     Indication: HYPERTENSION
  10. SECTRAL [Concomitant]
     Indication: HYPERTENSION

REACTIONS (6)
  - BRADYCARDIA [None]
  - BUNDLE BRANCH BLOCK RIGHT [None]
  - FALL [None]
  - HYPOXIA [None]
  - SYNCOPE [None]
  - VENTRICULAR EXTRASYSTOLES [None]
